FAERS Safety Report 21476550 (Version 1)
Quarter: 2022Q4

REPORT INFORMATION
  Report Type: Spontaneous
  Country: DK (occurrence: DK)
  Receive Date: 20221019
  Receipt Date: 20221019
  Transmission Date: 20230112
  Serious: Yes (Hospitalization)
  Sender: FDA-Public Use
  Company Number: None

PATIENT
  Sex: Male

DRUGS (1)
  1. ADALIMUMAB [Suspect]
     Active Substance: ADALIMUMAB
     Indication: Maternal exposure timing unspecified

REACTIONS (7)
  - Neonatal tachycardia [Unknown]
  - Pallor [Unknown]
  - Sepsis neonatal [Recovered/Resolved]
  - Meningitis [Unknown]
  - General physical health deterioration [Recovered/Resolved]
  - Foetal exposure during pregnancy [Unknown]
  - Respiratory disorder [Recovered/Resolved]

NARRATIVE: CASE EVENT DATE: 20220303
